FAERS Safety Report 18821461 (Version 1)
Quarter: 2021Q1

REPORT INFORMATION
  Report Type: Spontaneous
  Country: CA (occurrence: CA)
  Receive Date: 20210202
  Receipt Date: 20210202
  Transmission Date: 20210419
  Serious: Yes (Other)
  Sender: FDA-Public Use
  Company Number: CA-ROCHE-2757206

PATIENT
  Age: 57 Year
  Sex: Female

DRUGS (1)
  1. ALECENSARO [Suspect]
     Active Substance: ALECTINIB
     Indication: PRODUCT USED FOR UNKNOWN INDICATION
     Dosage: 600 MG BID; WOULD LIKE TO ESCALATE TO 900 MG BID
     Route: 048
     Dates: start: 2017

REACTIONS (4)
  - Drug ineffective [Unknown]
  - Off label use [Unknown]
  - Nervous system disorder [Unknown]
  - Intentional product use issue [Unknown]

NARRATIVE: CASE EVENT DATE: 202011
